FAERS Safety Report 21165520 (Version 1)
Quarter: 2022Q3

REPORT INFORMATION
  Report Type: Spontaneous
  Country: US (occurrence: US)
  Receive Date: 20220803
  Receipt Date: 20220803
  Transmission Date: 20221027
  Serious: No
  Sender: FDA-Public Use
  Company Number: US-MICRO LABS LIMITED-ML2022-02635

PATIENT
  Sex: Female

DRUGS (1)
  1. DORZOLAMIDE\TIMOLOL [Suspect]
     Active Substance: DORZOLAMIDE\TIMOLOL
     Dosage: STRENGTH: 22.3 MG/6.8 MG ML; FREQUENCY: TWICE A DAY

REACTIONS (1)
  - Product dose omission issue [Unknown]
